FAERS Safety Report 22210804 (Version 7)
Quarter: 2025Q3

REPORT INFORMATION
  Report Type: Spontaneous
  Country: EU (occurrence: EU)
  Receive Date: 20230414
  Receipt Date: 20250729
  Transmission Date: 20251021
  Serious: Yes (Other)
  Sender: JOHNSON AND JOHNSON
  Company Number: None

PATIENT
  Age: 32 Year
  Sex: Male

DRUGS (2)
  1. RILPIVIRINE [Suspect]
     Active Substance: RILPIVIRINE
     Indication: HIV infection
     Route: 030
     Dates: start: 20230228, end: 20230228
  2. VOCABRIA [Suspect]
     Active Substance: CABOTEGRAVIR SODIUM
     Indication: HIV infection
     Dosage: 1 DF, QD (TOTAL)
     Route: 030
     Dates: start: 20230228, end: 20230228

REACTIONS (2)
  - Chest pain [Unknown]
  - Pericarditis [Unknown]

NARRATIVE: CASE EVENT DATE: 20230323
